FAERS Safety Report 10762787 (Version 1)
Quarter: 2015Q1

REPORT INFORMATION
  Report Type: Spontaneous
  Country: US (occurrence: None)
  Receive Date: 20150128
  Receipt Date: 20150128
  Transmission Date: 20150721
  Serious: Yes (Other)
  Sender: FDA-Public Use
  Company Number: 1322990

PATIENT
  Sex: Male

DRUGS (12)
  1. RITUXIMAB (RITUXIMAB) [Suspect]
     Active Substance: RITUXIMAB
     Indication: CHRONIC LYMPHOCYTIC LEUKAEMIA
     Dosage: (700 MG,1 IN 28 D),INTRAVENOUS
     Route: 042
     Dates: start: 20131105, end: 20131105
  2. BACTRIM DS (SULFAMETHOXAZOLE, TRIMETHOPRIM) [Concomitant]
  3. ALLOPURINOL. [Concomitant]
     Active Substance: ALLOPURINOL
  4. NEULASTA [Concomitant]
     Active Substance: PEGFILGRASTIM
  5. CYTOXAN [Concomitant]
     Active Substance: CYCLOPHOSPHAMIDE
  6. ACYCLOVIR (ACICLOVIR) [Concomitant]
  7. TYLENOL [Concomitant]
     Active Substance: ACETAMINOPHEN
  8. FLUDARA [Concomitant]
     Active Substance: FLUDARABINE PHOSPHATE
  9. BENADRYL (UNITED STATES) (DIPHENHYDRAMINE HYDROCHLORIDE) [Concomitant]
  10. ALOXI (PALONOSETRON HYDROCHLORIDE) [Concomitant]
  11. DECADRON [Concomitant]
     Active Substance: DEXAMETHASONE
  12. ARZERRA [Concomitant]
     Active Substance: OFATUMUMAB

REACTIONS (5)
  - Feeling abnormal [None]
  - Abdominal discomfort [None]
  - Serum sickness [None]
  - Influenza [None]
  - Pain [None]

NARRATIVE: CASE EVENT DATE: 20131230
